FAERS Safety Report 8708493 (Version 3)
Quarter: 2013Q1

REPORT INFORMATION
  Report Type: Report from Study
  Country: CA (occurrence: CA)
  Receive Date: 20120806
  Receipt Date: 20130122
  Transmission Date: 20140127
  Serious: Yes (Hospitalization)
  Sender: FDA-Public Use
  Company Number: CA-BRISTOL-MYERS SQUIBB COMPANY-16813388

PATIENT
  Age: 64 Year
  Sex: Female

DRUGS (10)
  1. ORENCIA [Suspect]
     Indication: RHEUMATOID ARTHRITIS
     Dosage: LAST DOSE:19JUN2012,17AUG12.Q4?NO OF INF-4
     Route: 042
     Dates: start: 20120516
  2. DIGOXIN [Suspect]
  3. PREDNISONE [Concomitant]
  4. GLUCOSE POLYMERS [Concomitant]
  5. PANTOLOC [Concomitant]
  6. FUROSEMIDE [Concomitant]
  7. COUMADIN [Concomitant]
  8. VITAMIN D [Concomitant]
     Dosage: TABS
  9. FOLIC ACID [Concomitant]
     Dosage: EURO FOLIC
  10. IRON [Concomitant]
     Dosage: IRON INFUSIONS

REACTIONS (3)
  - Arrhythmia [Unknown]
  - Urinary tract infection [Unknown]
  - Haemoglobin decreased [Not Recovered/Not Resolved]
